FAERS Safety Report 8368225-0 (Version None)
Quarter: 2012Q2

REPORT INFORMATION
  Report Type: 
  Country: None (occurrence: None)
  Receive Date: 20120517
  Receipt Date: 20120515
  Transmission Date: 20120825
  Serious: Yes (Hospitalization, Other)
  Sender: FDA-Public Use
  Company Number: BR-GILEAD-2010-0033789

PATIENT
  Sex: Male

DRUGS (6)
  1. LAMIVUDINE (EPIVIR HBV) [Suspect]
     Indication: HIV INFECTION
     Dosage: 300 MG, QD
     Route: 048
  2. TENOFOVIR DISOPROXIL FUMARATE [Suspect]
     Indication: HIV INFECTION
     Dosage: 300 MG, QD
     Dates: start: 20101020
  3. ISONIAZID [Concomitant]
     Indication: TUBERCULOSIS
     Dates: start: 20101104
  4. RALTEGRAVIR [Suspect]
     Indication: HIV INFECTION
     Dosage: 1600 MG, QD
     Route: 048
     Dates: start: 20101020
  5. RIFAMPIN [Concomitant]
     Indication: TUBERCULOSIS
     Dates: start: 20101104
  6. COTRIM [Concomitant]
     Indication: INFECTION PROPHYLAXIS
     Dates: start: 20101003

REACTIONS (1)
  - DEEP VEIN THROMBOSIS [None]
